FAERS Safety Report 13574719 (Version 1)
Quarter: 2017Q2

REPORT INFORMATION
  Report Type: Report from Study
  Country: US (occurrence: US)
  Receive Date: 20170523
  Receipt Date: 20170523
  Transmission Date: 20170830
  Serious: Yes (Hospitalization, Other)
  Sender: FDA-Public Use
  Company Number: US-MYLANLABS-2017M1030614

PATIENT

DRUGS (16)
  1. METHOTREXATE. [Suspect]
     Active Substance: METHOTREXATE
     Dosage: 15 MG, UNK
     Route: 037
     Dates: start: 20170227, end: 20170227
  2. CYCLOPHOSPHAMIDE. [Suspect]
     Active Substance: CYCLOPHOSPHAMIDE
     Indication: LEUKAEMIA
     Dosage: 120 MG, UNK
     Route: 042
     Dates: start: 20170220, end: 20170220
  3. CYTARABINE. [Suspect]
     Active Substance: CYTARABINE
     Indication: LEUKAEMIA
     Dosage: 160 MG, QD
     Route: 042
     Dates: start: 20170220, end: 20170223
  4. CYTARABINE. [Suspect]
     Active Substance: CYTARABINE
     Dosage: 160 MG, QD
     Route: 042
     Dates: start: 20170327, end: 20170330
  5. METHOTREXATE. [Suspect]
     Active Substance: METHOTREXATE
     Dosage: 15 MG, UNK
     Route: 037
     Dates: start: 20170307, end: 20170307
  6. PEGASPARGASE [Suspect]
     Active Substance: PEGASPARGASE
     Indication: LEUKAEMIA
     Dosage: 3475 UNITS, UNK
     Route: 042
     Dates: start: 20170307, end: 20170410
  7. VINCRISTINE [Suspect]
     Active Substance: VINCRISTINE
     Indication: LEUKAEMIA
     Dosage: 2 MG, UNK
     Route: 042
     Dates: start: 20170307
  8. METHOTREXATE. [Suspect]
     Active Substance: METHOTREXATE
     Indication: LEUKAEMIA
     Dosage: 15 MG, UNK
     Route: 037
     Dates: start: 20170220, end: 20170220
  9. MERCAPTOPURINE. [Suspect]
     Active Substance: MERCAPTOPURINE
     Indication: LEUKAEMIA
     Dosage: 125 MG, HS
     Route: 048
     Dates: start: 20170220, end: 20170313
  10. CYCLOPHOSPHAMIDE. [Suspect]
     Active Substance: CYCLOPHOSPHAMIDE
     Dosage: 120 MG, UNK
     Route: 042
     Dates: start: 20170327, end: 20170327
  11. CYTARABINE. [Suspect]
     Active Substance: CYTARABINE
     Dosage: 160 MG, QD
     Route: 042
     Dates: start: 20170403, end: 20170406
  12. METHOTREXATE. [Suspect]
     Active Substance: METHOTREXATE
     Dosage: 15 MG, UNK
     Route: 037
     Dates: start: 20170313, end: 20170313
  13. MERCAPTOPURINE. [Suspect]
     Active Substance: MERCAPTOPURINE
     Dosage: 125 MG, HS
     Route: 048
     Dates: start: 20170327, end: 20170411
  14. ZOLOFT [Concomitant]
     Active Substance: SERTRALINE HYDROCHLORIDE
     Indication: PRODUCT USED FOR UNKNOWN INDICATION
     Dosage: UNK
     Dates: start: 20170301
  15. INVESTIGATIONAL DRUG [Suspect]
     Active Substance: INVESTIGATIONAL PRODUCT
     Indication: LEUKAEMIA
     Dosage: 40 MG, BID
     Route: 048
     Dates: start: 20170220
  16. CYTARABINE. [Suspect]
     Active Substance: CYTARABINE
     Dosage: 160 MG, QD
     Route: 042
     Dates: start: 20170227, end: 20170302

REACTIONS (2)
  - Headache [Recovered/Resolved]
  - Bacteraemia [Recovered/Resolved]

NARRATIVE: CASE EVENT DATE: 20170412
